FAERS Safety Report 9693319 (Version 1)
Quarter: 2013Q4

REPORT INFORMATION
  Report Type: Spontaneous
  Country: US (occurrence: None)
  Receive Date: 20131114
  Receipt Date: 20131114
  Transmission Date: 20140711
  Serious: Yes (Death)
  Sender: FDA-Public Use
  Company Number: CO-OR-US-2013-181

PATIENT
  Age: 21 Month
  Sex: Female

DRUGS (2)
  1. PREDNISOLONE [Suspect]
     Indication: INFANTILE SPASMS
     Dosage: MINIMUN 4 MG/KG/DAY DIVIDED TID, TO A MAXIMUM OF 60 MG/DAY, ORAL
  2. TOPIRAMATE [Suspect]
     Indication: EPILEPSY
     Dosage: UNKNOWN

REACTIONS (1)
  - Electroencephalogram abnormal [None]
